FAERS Safety Report 21082633 (Version 1)
Quarter: 2022Q3

REPORT INFORMATION
  Report Type: Spontaneous
  Country: CN (occurrence: CN)
  Receive Date: 20220714
  Receipt Date: 20220714
  Transmission Date: 20221027
  Serious: Yes (Other)
  Sender: FDA-Public Use
  Company Number: None

PATIENT
  Age: 35 Year
  Sex: Female
  Weight: 62 kg

DRUGS (5)
  1. CYCLOPHOSPHAMIDE [Suspect]
     Active Substance: CYCLOPHOSPHAMIDE
     Indication: Breast cancer female
     Dosage: 1000 MG, QD, CYCLOPHOSPHAMIDE(1000MG) + NS(50ML)
     Route: 042
     Dates: start: 20220511, end: 20220511
  2. SODIUM CHLORIDE [Suspect]
     Active Substance: SODIUM CHLORIDE
     Indication: Medication dilution
     Dosage: 50 ML, QD,CYCLOPHOSPHAMIDE(1000MG) + NS(50ML)
     Route: 042
     Dates: start: 20220511, end: 20220511
  3. SODIUM CHLORIDE [Suspect]
     Active Substance: SODIUM CHLORIDE
     Dosage: 100 ML, QD, EPIRUBUCIN HYDROCHLORIDE(135MG) + NS(100ML)
     Route: 041
     Dates: start: 20220511, end: 20220511
  4. EPIRUBICIN [Suspect]
     Active Substance: EPIRUBICIN
     Indication: Breast cancer female
     Dosage: 135 MG, QD, EPIRUBUCIN HYDROCHLORIDE(135MG) + NS(100ML)
     Route: 041
     Dates: start: 20220511, end: 20220511
  5. XIN RUI BAI [Concomitant]
     Indication: Product used for unknown indication
     Dosage: 3 MG
     Route: 058
     Dates: start: 202205

REACTIONS (2)
  - White blood cell count decreased [Recovered/Resolved]
  - Agranulocytosis [Recovered/Resolved]

NARRATIVE: CASE EVENT DATE: 20220518
